FAERS Safety Report 6346528-9 (Version None)
Quarter: 2009Q3

REPORT INFORMATION
  Report Type: 
  Country: None (occurrence: None)
  Receive Date: 20090909
  Receipt Date: 20090904
  Transmission Date: 20100115
  Serious: Yes (Other)
  Sender: FDA-Public Use
  Company Number: TW-WYE-H10840309

PATIENT
  Age: 87 Year
  Sex: Male

DRUGS (2)
  1. PIPERACILLIN SODIUM AND TAZOBACTAM SODIUM [Suspect]
     Indication: ESCHERICHIA URINARY TRACT INFECTION
     Route: 042
  2. PIPERACILLIN SODIUM AND TAZOBACTAM SODIUM [Suspect]
     Indication: ESCHERICHIA INFECTION

REACTIONS (2)
  - ENCEPHALOPATHY [None]
  - NEUROTOXICITY [None]
